FAERS Safety Report 6945518-2 (Version None)
Quarter: 2010Q3

REPORT INFORMATION
  Report Type: 
  Country: None (occurrence: None)
  Receive Date: 20100827
  Receipt Date: 20100824
  Transmission Date: 20110219
  Serious: Yes (Other)
  Sender: FDA-Public Use
  Company Number: CO-ROCHE-722952

PATIENT
  Sex: Female

DRUGS (1)
  1. CELLCEPT [Suspect]
     Dosage: FREQUENCY: QD (EVERY DAY)
     Route: 048
     Dates: start: 20100603, end: 20100701

REACTIONS (1)
  - TRANSPLANT REJECTION [None]
